FAERS Safety Report 6220320-8 (Version None)
Quarter: 2009Q2

REPORT INFORMATION
  Report Type: 
  Country: None (occurrence: None)
  Receive Date: 20090526
  Receipt Date: 20090514
  Transmission Date: 20091009
  Serious: Yes (Hospitalization, Disabling)
  Sender: FDA-Public Use
  Company Number: AEUSA200800250

PATIENT
  Age: 42 Year
  Sex: Male
  Weight: 142.8831 kg

DRUGS (2)
  1. RABIES IMMUNEGLOBULIN (HUMAN) HYPERRAB [Suspect]
     Indication: ANIMAL BITE
     Dosage: 2900 IU;1X;IM
     Route: 030
     Dates: start: 20050910, end: 20050910
  2. RABAVERT [Suspect]
     Indication: RABIES
     Dates: start: 20050910, end: 20051007

REACTIONS (7)
  - DRUG INEFFECTIVE [None]
  - FIBROMYALGIA [None]
  - IMMUNE SYSTEM DISORDER [None]
  - LYME DISEASE [None]
  - MIXED CONNECTIVE TISSUE DISEASE [None]
  - RHEUMATOID ARTHRITIS [None]
  - SERUM SICKNESS [None]
